FAERS Safety Report 21975181 (Version 2)
Quarter: 2023Q2

REPORT INFORMATION
  Report Type: Report from Study
  Country: US (occurrence: US)
  Receive Date: 20230209
  Receipt Date: 20230404
  Transmission Date: 20230721
  Serious: No
  Sender: FDA-Public Use
  Company Number: US-ACADIA PHARMACEUTICALS INC.-ACA-2023-PIM-000229

PATIENT
  Sex: Male

DRUGS (11)
  1. NUPLAZID [Suspect]
     Active Substance: PIMAVANSERIN TARTRATE
     Indication: Parkinson^s disease
     Dosage: 34 MILLIGRAM, QD
     Route: 048
     Dates: start: 202107
  2. IRON [Suspect]
     Active Substance: IRON
  3. CARVEDILOL [Concomitant]
     Active Substance: CARVEDILOL
  4. DONEPEZIL [Concomitant]
     Active Substance: DONEPEZIL
  5. TYLENOL [Concomitant]
     Active Substance: ACETAMINOPHEN
  6. VITAMIN D NOS [Concomitant]
     Active Substance: VITAMIN D NOS
  7. CARBIDOPA [Concomitant]
     Active Substance: CARBIDOPA
  8. COLACE [Concomitant]
     Active Substance: DOCUSATE SODIUM
  9. AMLODIPINE BESYLATE [Concomitant]
     Active Substance: AMLODIPINE BESYLATE
  10. QUETIAPINE FUMARATE [Concomitant]
     Active Substance: QUETIAPINE FUMARATE
  11. CARBIDOPA\LEVODOPA [Concomitant]
     Active Substance: CARBIDOPA\LEVODOPA

REACTIONS (3)
  - Ill-defined disorder [Unknown]
  - Hallucination [Unknown]
  - Constipation [Unknown]
